FAERS Safety Report 18890890 (Version 2)
Quarter: 2021Q1

REPORT INFORMATION
  Report Type: Spontaneous
  Country: US (occurrence: US)
  Receive Date: 20210215
  Receipt Date: 20210331
  Transmission Date: 20210420
  Serious: Yes (Other)
  Sender: FDA-Public Use
  Company Number: US-PACIRA-2021000074

PATIENT
  Age: 47 Year
  Sex: Female
  Weight: 59 kg

DRUGS (3)
  1. EXPAREL [Suspect]
     Active Substance: BUPIVACAINE
     Dosage: 7 CC
     Route: 058
     Dates: start: 20201211, end: 20201211
  2. DEXAMETHASONE PHOSPHATE [Concomitant]
     Active Substance: DEXAMETHASONE PHOSPHATE
     Dosage: 1 MG, SOLUTION
     Route: 030
     Dates: start: 20201210, end: 20201212
  3. SENSORCAINE [Concomitant]
     Active Substance: BUPIVACAINE HYDROCHLORIDE
     Dosage: 0.5%, 10CC, SOLUTION
     Route: 058
     Dates: start: 20201211, end: 20201211

REACTIONS (4)
  - Blister [Not Recovered/Not Resolved]
  - Tendon necrosis [Not Recovered/Not Resolved]
  - Swelling [Recovered/Resolved]
  - Skin necrosis [Not Recovered/Not Resolved]

NARRATIVE: CASE EVENT DATE: 20201212
